FAERS Safety Report 4339016-2 (Version None)
Quarter: 2004Q2

REPORT INFORMATION
  Report Type: 
  Country: None (occurrence: None)
  Receive Date: 20040409
  Receipt Date: 20040331
  Transmission Date: 20050107
  Serious: No
  Sender: FDA-Public Use
  Company Number: 2003AP04017

PATIENT
  Age: 75 Year
  Sex: Male

DRUGS (2)
  1. ZOLADEX [Suspect]
     Indication: PROSTATE CANCER
     Dosage: 3.6 MG Q4WK SQ
     Dates: start: 20031008
  2. ODYNE [Concomitant]

REACTIONS (4)
  - DYSPNOEA [None]
  - INFECTION [None]
  - INTERSTITIAL LUNG DISEASE [None]
  - SPUTUM PURULENT [None]
